FAERS Safety Report 21786528 (Version 3)
Quarter: 2023Q2

REPORT INFORMATION
  Report Type: Spontaneous
  Country: US (occurrence: US)
  Receive Date: 20221228
  Receipt Date: 20230404
  Transmission Date: 20230721
  Serious: No
  Sender: FDA-Public Use
  Company Number: US-AMGEN-USASP2022223671

PATIENT
  Age: 56 Year
  Sex: Male
  Weight: 72.56 kg

DRUGS (10)
  1. XGEVA [Suspect]
     Active Substance: DENOSUMAB
     Indication: Renal cell carcinoma
     Dosage: 120 MILLIGRAM, QMO
     Route: 058
  2. CABOMETYX [Suspect]
     Active Substance: CABOZANTINIB S-MALATE
     Indication: Renal cancer
     Dosage: 40 MILLIGRAM, QD
     Route: 065
     Dates: start: 20220929
  3. METFORMIN HYDROCHLORIDE [Concomitant]
     Active Substance: METFORMIN HYDROCHLORIDE
  4. LANTUS [Concomitant]
     Active Substance: INSULIN GLARGINE
  5. HUMALOG [Concomitant]
     Active Substance: INSULIN LISPRO
  6. VITAMIN D [Concomitant]
     Active Substance: VITAMIN D NOS
  7. FARXIGA [Concomitant]
     Active Substance: DAPAGLIFLOZIN PROPANEDIOL
  8. VITAMINS [Concomitant]
     Active Substance: VITAMINS
  9. METAMUCIL [Concomitant]
     Active Substance: PLANTAGO SEED
  10. ZINC [Concomitant]
     Active Substance: ZINC
     Dosage: UNK

REACTIONS (17)
  - Lymphadenopathy [Unknown]
  - Blood pressure increased [Recovering/Resolving]
  - Anaemia [Not Recovered/Not Resolved]
  - Dysgeusia [Recovered/Resolved]
  - Dry skin [Recovered/Resolved]
  - Blood magnesium increased [Not Recovered/Not Resolved]
  - Blood cholesterol increased [Not Recovered/Not Resolved]
  - Skin swelling [Recovered/Resolved]
  - Stomatitis [Recovered/Resolved]
  - Off label use [Unknown]
  - Flatulence [Recovered/Resolved]
  - Skin exfoliation [Unknown]
  - Product dose omission issue [Unknown]
  - Hunger [Unknown]
  - Diarrhoea [Unknown]
  - Grip strength decreased [Unknown]
  - Constipation [Unknown]

NARRATIVE: CASE EVENT DATE: 20221101
